FAERS Safety Report 18432679 (Version 1)
Quarter: 2020Q4

REPORT INFORMATION
  Report Type: Spontaneous
  Country: US (occurrence: US)
  Receive Date: 20201027
  Receipt Date: 20201027
  Transmission Date: 20210114
  Serious: Yes (Death, Hospitalization, Other)
  Sender: FDA-Public Use
  Company Number: US-PURDUE-USA-2020-0170513

PATIENT
  Sex: Female

DRUGS (2)
  1. HYDROCODONE BITARTRATE/ACETAMINOPHEN [Suspect]
     Active Substance: ACETAMINOPHEN\HYDROCODONE BITARTRATE
     Indication: PRODUCT USED FOR UNKNOWN INDICATION
     Dosage: UNK
     Route: 048
  2. VICODIN [Suspect]
     Active Substance: ACETAMINOPHEN\HYDROCODONE BITARTRATE
     Indication: PAIN
     Dosage: UNK
     Route: 065

REACTIONS (18)
  - Depression [Unknown]
  - Hallucination [Unknown]
  - Sleep disorder [Unknown]
  - Drug dependence [Unknown]
  - Poor personal hygiene [Unknown]
  - Injury [Unknown]
  - Arteriosclerosis [Fatal]
  - Coma [Unknown]
  - Amnesia [Unknown]
  - Constipation [Unknown]
  - Cardiac disorder [Unknown]
  - Blood pressure diastolic increased [Unknown]
  - Fall [Unknown]
  - Gastrointestinal disorder [Unknown]
  - Infection [Unknown]
  - Overdose [Unknown]
  - Diabetes mellitus [Unknown]
  - Intestinal obstruction [Unknown]
